FAERS Safety Report 11697462 (Version 4)
Quarter: 2016Q1

REPORT INFORMATION
  Report Type: Spontaneous
  Country: US (occurrence: US)
  Receive Date: 20151104
  Receipt Date: 20160229
  Transmission Date: 20160525
  Serious: No
  Sender: FDA-Public Use
  Company Number: US-PFIZER INC-2015352086

PATIENT
  Age: 69 Year
  Sex: Female
  Weight: 66 kg

DRUGS (4)
  1. IBRANCE [Suspect]
     Active Substance: PALBOCICLIB
     Indication: BREAST CANCER
     Dosage: 125 MG, CYCLIC (125MG 1 CAPSULE BY MOUTH DAILY WITH FOOD FOR 21 DAYS FOLLOWED BY 7 DAYS OFF)
     Route: 048
     Dates: start: 201507
  2. FEMARA [Concomitant]
     Active Substance: LETROZOLE
     Indication: BREAST CANCER METASTATIC
     Dosage: 2.5 MG, 1X/DAY (FOR 30 DAYS)
     Dates: start: 201507
  3. IBRANCE [Suspect]
     Active Substance: PALBOCICLIB
     Indication: BREAST CANCER METASTATIC
     Dosage: 125 MG, CYCLIC (FOR 21 DAYS WITH FEMARA)
     Dates: start: 201507
  4. AMOXICILLIN SODIUM, CLAVULANATE POTASSIUM [Concomitant]
     Dosage: 1 DF, 2X/DAY (AMOXICILLIN TRIHYDRATE-500 MG, CLAVULANATE POTASSIUM-125 MG)

REACTIONS (6)
  - Nasopharyngitis [Recovered/Resolved]
  - Laryngitis [Recovered/Resolved]
  - Cough [Recovered/Resolved]
  - Chest discomfort [Recovered/Resolved]
  - White blood cell count decreased [Unknown]
  - Malaise [Recovered/Resolved]

NARRATIVE: CASE EVENT DATE: 20151031
